FAERS Safety Report 5733805-5 (Version None)
Quarter: 2008Q2

REPORT INFORMATION
  Report Type: 
  Country: None (occurrence: None)
  Receive Date: 20080509
  Receipt Date: 20080430
  Transmission Date: 20081010
  Serious: Yes (Life-Threatening)
  Sender: FDA-Public Use
  Company Number: JP-SANOFI-SYNTHELABO-A01200804172

PATIENT
  Sex: Male
  Weight: 54 kg

DRUGS (7)
  1. DEXAMETHASONE SODIUM PHOSPHATE [Concomitant]
     Route: 041
     Dates: start: 20071017, end: 20080326
  2. GRANISETRON  HCL [Concomitant]
     Route: 041
     Dates: start: 20071017, end: 20080326
  3. FLUOROURACIL [Concomitant]
     Route: 040
     Dates: start: 20080312, end: 20080312
  4. FLUOROURACIL [Concomitant]
     Route: 041
     Dates: start: 20080312, end: 20080313
  5. LEUCOVORIN CALCIUM [Suspect]
     Route: 041
     Dates: start: 20080326, end: 20080326
  6. BEVACIZUMAB [Suspect]
     Route: 041
     Dates: start: 20080326
  7. OXALIPLATIN [Suspect]
     Indication: RECTAL CANCER
     Route: 041
     Dates: start: 20080326, end: 20080326

REACTIONS (1)
  - ASTHMA [None]
